FAERS Safety Report 6106642-X (Version None)
Quarter: 2009Q1

REPORT INFORMATION
  Report Type: 
  Country: None (occurrence: None)
  Receive Date: 20090304
  Receipt Date: 20090216
  Transmission Date: 20090719
  Serious: Yes (Death)
  Sender: FDA-Public Use
  Company Number: VAL_00205_2009

PATIENT

DRUGS (3)
  1. CALCITRIOL [Suspect]
     Indication: ANAEMIA
     Dosage: (1 ?G QD ORAL)
     Route: 048
  2. ISOTRETINOIN [Suspect]
     Indication: ANAEMIA
     Dosage: (20 MG QD ORAL)
     Route: 048
  3. EPOETIN BETA (EPOETIN BETA) [Suspect]
     Indication: ANAEMIA
     Dosage: (DF)

REACTIONS (1)
  - NEOPLASM MALIGNANT [None]
